FAERS Safety Report 9183964 (Version 1)
Quarter: 2013Q1

REPORT INFORMATION
  Report Type: Spontaneous
  Country: US (occurrence: US)
  Receive Date: 20130322
  Receipt Date: 20130322
  Transmission Date: 20140127
  Serious: No
  Sender: FDA-Public Use
  Company Number: US-BRISTOL-MYERS SQUIBB COMPANY-16680324

PATIENT
  Age: 59 Year
  Sex: Female
  Weight: 68.48 kg

DRUGS (3)
  1. ERBITUX [Suspect]
     Indication: HEPATIC CANCER
     Dates: start: 20120606
  2. ERBITUX [Suspect]
     Indication: GASTRIC CANCER
     Dates: start: 20120606
  3. ERBITUX [Suspect]
     Indication: LUNG NEOPLASM MALIGNANT
     Dates: start: 20120606

REACTIONS (5)
  - Gait disturbance [Unknown]
  - Muscle spasms [Unknown]
  - Pain in extremity [Unknown]
  - Asthenia [Unknown]
  - Decreased appetite [Unknown]
